FAERS Safety Report 5802247-6 (Version None)
Quarter: 2008Q3

REPORT INFORMATION
  Report Type: 
  Country: None (occurrence: None)
  Receive Date: 20080707
  Receipt Date: 20080625
  Transmission Date: 20090109
  Serious: Yes (Hospitalization, Other)
  Sender: FDA-Public Use
  Company Number: US-PFIZER INC-2008054037

PATIENT
  Age: 42 Year
  Sex: Female

DRUGS (6)
  1. LYRICA [Suspect]
     Indication: FIBROMYALGIA
  2. BENADRYL [Interacting]
     Indication: ALLERGY TO ANIMAL
     Dates: start: 20080101, end: 20080101
  3. DILANTIN [Concomitant]
  4. VALIUM [Concomitant]
  5. ZANAFLEX [Concomitant]
  6. MORPHINE [Concomitant]

REACTIONS (8)
  - ASPIRATION [None]
  - DRUG INTERACTION [None]
  - EYE SWELLING [None]
  - ORAL DISCHARGE [None]
  - RHINORRHOEA [None]
  - SOMNOLENCE [None]
  - SWELLING FACE [None]
  - THERAPEUTIC AGENT TOXICITY [None]
